FAERS Safety Report 18212252 (Version 4)
Quarter: 2020Q4

REPORT INFORMATION
  Report Type: Spontaneous
  Country: IE (occurrence: IE)
  Receive Date: 20200831
  Receipt Date: 20201103
  Transmission Date: 20210113
  Serious: Yes (Life-Threatening, Hospitalization, Other)
  Sender: FDA-Public Use
  Company Number: IE-PFIZER INC-2020329513

PATIENT
  Age: 32 Year
  Sex: Male

DRUGS (25)
  1. CYTARABINE. [Suspect]
     Active Substance: CYTARABINE
     Indication: BONE MARROW CONDITIONING REGIMEN
     Dosage: UNK, (BEAM CONSOLIDATION REGIMEN)
  2. VINBLASTINE [Suspect]
     Active Substance: VINBLASTINE
     Indication: HODGKIN^S DISEASE STAGE IV
     Dosage: UNK, CYCLIC, (ABVD REGIMEN; 2 CYCLES)
  3. BRENTUXIMAB VEDOTIN [Suspect]
     Active Substance: BRENTUXIMAB VEDOTIN
     Indication: HODGKIN^S DISEASE STAGE IV
     Dosage: UNK, (SALVAGE THERAPY)
  4. CARMUSTINE. [Suspect]
     Active Substance: CARMUSTINE
     Indication: BONE MARROW CONDITIONING REGIMEN
     Dosage: UNK, (BEAM CONSOLIDATION REGIMEN)
  5. ETOPOSIDE. [Suspect]
     Active Substance: ETOPOSIDE
     Dosage: UNK
  6. CARBOPLATIN. [Suspect]
     Active Substance: CARBOPLATIN
     Indication: HODGKIN^S DISEASE STAGE IV
     Dosage: UNK, CYCLIC, (ICE REGIMEN; 3 CYCLES)
  7. PROCARBAZINE [Suspect]
     Active Substance: PROCARBAZINE
     Indication: HODGKIN^S DISEASE STAGE IV
     Dosage: UNK, CYCLIC, (BEACOPP REGIMEN; 2 CYCLES)
  8. ONCOVIN [Suspect]
     Active Substance: VINCRISTINE SULFATE
     Indication: HODGKIN^S DISEASE STAGE IV
     Dosage: UNK, CYCLIC, (BEACOPP REGIMEN; 2 CYCLES)
  9. ETOPOSIDE. [Suspect]
     Active Substance: ETOPOSIDE
     Indication: HODGKIN^S DISEASE STAGE IV
     Dosage: UNK
  10. PREDNISOLONE. [Suspect]
     Active Substance: PREDNISOLONE
     Indication: HODGKIN^S DISEASE STAGE IV
  11. CICLOSPORIN [Suspect]
     Active Substance: CYCLOSPORINE
     Dosage: 50 MG, 2X/DAY
  12. IFOSFAMIDE. [Suspect]
     Active Substance: IFOSFAMIDE
     Indication: HODGKIN^S DISEASE STAGE IV
     Dosage: UNK
  13. ATOVAQUONE. [Concomitant]
     Active Substance: ATOVAQUONE
     Dosage: 750 MG, 2X/DAY
  14. BLEOMYCIN [Suspect]
     Active Substance: BLEOMYCIN SULFATE
     Dosage: UNK
  15. CYCLOPHOSPHAMIDE. [Suspect]
     Active Substance: CYCLOPHOSPHAMIDE
     Indication: HODGKIN^S DISEASE STAGE IV
     Dosage: UNK, CYCLIC, ((BEACOPP REGIMEN; 2 CYCLES))
  16. BLEOMYCIN [Suspect]
     Active Substance: BLEOMYCIN SULFATE
     Indication: HODGKIN^S DISEASE STAGE IV
     Dosage: UNK, CYCLIC
  17. VALACICLOVIR [Concomitant]
     Active Substance: VALACYCLOVIR HYDROCHLORIDE
     Dosage: 500 MG, 1X/DAY
  18. PHENOXYMETHYLPENICILLIN [Concomitant]
     Active Substance: PENICILLIN V
     Dosage: 333 MG, 2X/DAY
  19. ALEMTUZUMAB [Suspect]
     Active Substance: ALEMTUZUMAB
     Indication: BONE MARROW CONDITIONING REGIMEN
     Dosage: UNK, (CONDITIONING REGIMEN)
  20. PREDNISOLONE. [Suspect]
     Active Substance: PREDNISOLONE
     Indication: GRAFT VERSUS HOST DISEASE IN SKIN
     Dosage: 10 MG, 1X/DAY, (FOR SKIN GRAFT VERSUS HOST DISEASE BEACOPP REGIMEN; 2 CYCLES)
  21. ADRIAMYCIN [Suspect]
     Active Substance: DOXORUBICIN HYDROCHLORIDE
     Indication: HODGKIN^S DISEASE STAGE IV
     Dosage: UNK, CYCLIC, ABVD REGIMEN AND BEACOPP REGIMEN ABVD REGIMEN; 2 CYCLES. BEACOPP REGIMEN; 2 CYCLES
  22. ADRIAMYCIN [Suspect]
     Active Substance: DOXORUBICIN HYDROCHLORIDE
     Dosage: UNK
  23. MELPHALAN. [Suspect]
     Active Substance: MELPHALAN
     Indication: BONE MARROW CONDITIONING REGIMEN
     Dosage: UNK, (BEAM CONSOLIDATION REGIMEN)
  24. ETOPOSIDE. [Suspect]
     Active Substance: ETOPOSIDE
     Indication: BONE MARROW CONDITIONING REGIMEN
     Dosage: UNK, CYCLIC, (BEACOPP REGIMEN; 2 CYCLES, ICE REGIMEN; 3 CYCLES AND BEAM CONSOLIDATION REGIMEN)
  25. DACARBAZINE. [Suspect]
     Active Substance: DACARBAZINE
     Indication: HODGKIN^S DISEASE STAGE IV
     Dosage: UNK, CYCLIC, (ABVD REGIMEN, 2 CYCLES)

REACTIONS (6)
  - Inappropriate antidiuretic hormone secretion [Recovering/Resolving]
  - Meningoencephalitis amoebic [Recovering/Resolving]
  - Acanthamoeba infection [Recovering/Resolving]
  - Vasogenic cerebral oedema [Recovering/Resolving]
  - Intracranial mass [Recovering/Resolving]
  - Generalised tonic-clonic seizure [Recovering/Resolving]
